FAERS Safety Report 25852260 (Version 5)
Quarter: 2025Q4

REPORT INFORMATION
  Report Type: Spontaneous
  Country: US (occurrence: US)
  Receive Date: 20250926
  Receipt Date: 20251023
  Transmission Date: 20260118
  Serious: Yes (Hospitalization, Other)
  Sender: TORRENT PHARMA INC.
  Company Number: US-TORRENT-00014533

PATIENT
  Sex: Female

DRUGS (2)
  1. PANTOPRAZOLE SODIUM [Suspect]
     Active Substance: PANTOPRAZOLE SODIUM
     Indication: Dyspepsia
     Dosage: 40 MG FROM CVS AND TOOK AS PRESCRIBED, BATCH NO 54342105 (REST WAS FADED OUT AND WAS NOT VISIBLE)
     Route: 065
  2. IRON [Concomitant]
     Active Substance: IRON
     Indication: Product used for unknown indication
     Dosage: UNKNOWN
     Route: 065

REACTIONS (12)
  - Therapeutic response changed [Unknown]
  - Ischaemic stroke [Unknown]
  - Product substitution issue [Unknown]
  - Rash pruritic [Recovering/Resolving]
  - Paralysis [Unknown]
  - Cerebral haemorrhage [Unknown]
  - Back pain [Unknown]
  - Skin irritation [Unknown]
  - Condition aggravated [Unknown]
  - Product dispensing error [Unknown]
  - Feeling abnormal [Unknown]
  - Loss of personal independence in daily activities [Unknown]

NARRATIVE: CASE EVENT DATE: 20250408
